FAERS Safety Report 7469692-7 (Version None)
Quarter: 2011Q2

REPORT INFORMATION
  Report Type: 
  Country: None (occurrence: None)
  Receive Date: 20110510
  Receipt Date: 20110505
  Transmission Date: 20111010
  Serious: Yes (Death, Life-Threatening, Hospitalization)
  Sender: FDA-Public Use
  Company Number: PT-BRISTOL-MYERS SQUIBB COMPANY-13750559

PATIENT
  Age: 41 Year
  Sex: Male

DRUGS (3)
  1. FLUOROURACIL [Suspect]
     Indication: SQUAMOUS CELL CARCINOMA
     Dosage: STARTED ON 5DEC05 STOOPED ON 28DEC05 RECENT INF:27DEC05
     Route: 042
     Dates: start: 20051205, end: 20051227
  2. CISPLATIN [Suspect]
     Indication: SQUAMOUS CELL CARCINOMA
     Dosage: STARTED ON 5DEC05 STOPPED ON 28DEC05 RECENT INF:27DEC05
     Route: 042
     Dates: start: 20051205, end: 20051227
  3. FLUOXETINE [Concomitant]
     Indication: DEPRESSION
     Dates: start: 20050825

REACTIONS (5)
  - NEOPLASM MALIGNANT [None]
  - TUMOUR HAEMORRHAGE [None]
  - INFECTED NEOPLASM [None]
  - DYSPNOEA [None]
  - FISTULA [None]
